FAERS Safety Report 8850319 (Version 2)
Quarter: 2012Q4

REPORT INFORMATION
  Report Type: 
  Country: UA (occurrence: UA)
  Receive Date: 20121019
  Receipt Date: 20121217
  Transmission Date: 20130627
  Serious: Yes (Death, Other)
  Sender: FDA-Public Use
  Company Number: PHHY2012UA093534

PATIENT
  Age: 28 Year
  Sex: Female

DRUGS (6)
  1. METHOTREXATE [Suspect]
     Dosage: 70 mg
     Route: 030
     Dates: start: 20120830, end: 20120830
  2. AKSEF [Concomitant]
     Dosage: 0.75 g, BID
     Route: 030
     Dates: start: 20120830, end: 20120901
  3. METRONIDAZOLE [Concomitant]
     Dosage: 100 ml, BID
     Route: 042
     Dates: start: 20120830, end: 20120901
  4. CIPRINOL [Concomitant]
     Dosage: 0.5 g, BID
     Route: 048
     Dates: start: 20120901, end: 20120903
  5. TRANEXAM [Concomitant]
     Dosage: 100 mg, QD
     Route: 042
     Dates: start: 20120830
  6. KETOLONG [Concomitant]
     Dosage: 1 ml, QD
     Route: 030
     Dates: start: 20120830, end: 20120901

REACTIONS (14)
  - Cerebral haemorrhage [Fatal]
  - Coma [Fatal]
  - Respiratory arrest [Fatal]
  - Cardiac arrest [Fatal]
  - Haemorrhage [Unknown]
  - Leukopenia [Unknown]
  - Aplastic anaemia [Unknown]
  - Thrombocytopenia [Unknown]
  - Petechiae [Unknown]
  - Purpura [Unknown]
  - Stomatitis [Unknown]
  - Headache [Unknown]
  - Body temperature increased [Unknown]
  - Urticaria [Unknown]
